FAERS Safety Report 16873910 (Version 1)
Quarter: 2019Q4

REPORT INFORMATION
  Report Type: Spontaneous
  Country: US (occurrence: US)
  Receive Date: 20191001
  Receipt Date: 20191001
  Transmission Date: 20200122
  Serious: Yes (Hospitalization, Other)
  Sender: FDA-Public Use
  Company Number: US-OTSUKA-2018_025291

PATIENT
  Sex: Female

DRUGS (1)
  1. ABILIFY [Suspect]
     Active Substance: ARIPIPRAZOLE
     Indication: PRODUCT USED FOR UNKNOWN INDICATION
     Dosage: UNK
     Route: 065
     Dates: start: 20030101, end: 20150101

REACTIONS (12)
  - Abortion [Unknown]
  - Compulsive sexual behaviour [Unknown]
  - Compulsive shopping [Unknown]
  - Divorced [Unknown]
  - Obsessive-compulsive disorder [Unknown]
  - Unwanted pregnancy [Unknown]
  - Legal problem [Unknown]
  - Emotional distress [Unknown]
  - Weight increased [Unknown]
  - Gambling disorder [Unknown]
  - Suicidal ideation [Unknown]
  - Economic problem [Unknown]
